FAERS Safety Report 10003860 (Version 2)
Quarter: 2014Q3

REPORT INFORMATION
  Report Type: Spontaneous
  Country: US (occurrence: US)
  Receive Date: 20140312
  Receipt Date: 20140815
  Transmission Date: 20150326
  Serious: Yes (Hospitalization)
  Sender: FDA-Public Use
  Company Number: US-BAYER-2014-035493

PATIENT
  Age: 25 Year
  Sex: Female
  Weight: 49.89 kg

DRUGS (6)
  1. YAZ [Suspect]
     Active Substance: DROSPIRENONE\ETHINYL ESTRADIOL
     Dosage: UNK
     Dates: start: 200804, end: 200807
  2. YASMIN [Suspect]
     Active Substance: DROSPIRENONE\ETHINYL ESTRADIOL
     Dosage: UNK
     Dates: start: 2005, end: 2005
  3. REOPRO [Concomitant]
     Active Substance: ABCIXIMAB
  4. AMITRIPTYLINE [Concomitant]
     Active Substance: AMITRIPTYLINE
     Indication: NECK PAIN
     Dosage: 25 MG, ONCE AT NIGHT
  5. TOPAMAX [Concomitant]
     Active Substance: TOPIRAMATE
     Indication: CONVULSION
     Dosage: 400 MG,ONCE IN THE MORNING
  6. ACIPHEX [Concomitant]
     Active Substance: RABEPRAZOLE SODIUM
     Indication: GASTROOESOPHAGEAL REFLUX DISEASE
     Dosage: 20 MG, BID

REACTIONS (8)
  - Cerebrovascular arteriovenous malformation [Recovered/Resolved]
  - Injury [None]
  - Emotional distress [None]
  - Anxiety [None]
  - Pain [None]
  - Abdominal pain [None]
  - General physical health deterioration [None]
  - Peripheral artery thrombosis [None]

NARRATIVE: CASE EVENT DATE: 200807
